FAERS Safety Report 22526818 (Version 3)
Quarter: 2023Q2

REPORT INFORMATION
  Report Type: Report from Study
  Country: GB (occurrence: GB)
  Receive Date: 20230606
  Receipt Date: 20230621
  Transmission Date: 20230721
  Serious: Yes (Other)
  Sender: FDA-Public Use
  Company Number: GB-ROCHE-2884535

PATIENT
  Age: 64 Year
  Sex: Female

DRUGS (31)
  1. TRASTUZUMAB [Suspect]
     Active Substance: TRASTUZUMAB
     Indication: HER2 positive breast cancer
     Dosage: 600 MILLIGRAM, Q3W
     Route: 058
     Dates: start: 20170324, end: 20210305
  2. TRASTUZUMAB [Suspect]
     Active Substance: TRASTUZUMAB
     Indication: Breast cancer metastatic
     Dosage: 600 MILLIGRAM, Q3W
     Route: 058
     Dates: end: 20210611
  3. TAMOXIFEN [Suspect]
     Active Substance: TAMOXIFEN
     Indication: HER2 positive breast cancer
     Dosage: 20 MILLIGRAM, QD
     Route: 048
  4. TAMOXIFEN [Suspect]
     Active Substance: TAMOXIFEN
     Indication: Breast cancer metastatic
  5. DOCETAXEL [Suspect]
     Active Substance: DOCETAXEL
     Indication: HER2 positive breast cancer
     Dosage: 200 MILLIGRAM, Q3W
     Route: 042
     Dates: start: 20170324, end: 20170620
  6. DOCETAXEL [Suspect]
     Active Substance: DOCETAXEL
     Indication: Breast cancer metastatic
     Dosage: 180 MILLIGRAM, Q3W
     Route: 042
     Dates: end: 20170711
  7. DOCETAXEL [Suspect]
     Active Substance: DOCETAXEL
     Dosage: 150 MILLIGRAM, QD
     Route: 042
     Dates: end: 20170712
  8. DOCETAXEL [Suspect]
     Active Substance: DOCETAXEL
     Dosage: 150 MILLIGRAM, Q3W
     Route: 042
     Dates: end: 20170712
  9. DOCETAXEL [Suspect]
     Active Substance: DOCETAXEL
     Dosage: 200 MILLIGRAM, Q3W
     Route: 042
     Dates: start: 20170324, end: 20170620
  10. Adcal [Concomitant]
     Dosage: UNK (ONGOING = CHECKED) START DATE: 01-AUG-2018
     Route: 048
  11. AMOXICILLIN [Concomitant]
     Active Substance: AMOXICILLIN
     Dosage: UNK (START DATE: 14-MAR-2019)
     Route: 065
     Dates: end: 20190328
  12. BENZYDAMINE [Concomitant]
     Active Substance: BENZYDAMINE
     Dosage: 10 MILLILITER (START DATE:30-MAY-2017)
     Route: 061
     Dates: end: 20170802
  13. COD LIVER OIL [Concomitant]
     Active Substance: COD LIVER OIL
     Dosage: UNK, QD (START DATE: 22-OCT-2017)
     Route: 048
  14. DEXAMETHASONE [Concomitant]
     Active Substance: DEXAMETHASONE
     Dosage: 8 MILLIGRAM
     Route: 048
     Dates: start: 20170323, end: 20170622
  15. DEXAMETHASONE [Concomitant]
     Active Substance: DEXAMETHASONE
     Dosage: 4 MILLIGRAM
     Route: 048
     Dates: start: 20170324, end: 20170715
  16. DEXAMETHASONE [Concomitant]
     Active Substance: DEXAMETHASONE
     Dosage: 2 MILLIGRAM
     Route: 048
     Dates: start: 20170324, end: 20170716
  17. DOMPERIDONE [Concomitant]
     Active Substance: DOMPERIDONE
     Dosage: 10 MILLIGRAM, TID (START DATE: 01-AUG-2018)
     Route: 048
     Dates: end: 201901
  18. FILGRASTIM [Concomitant]
     Active Substance: FILGRASTIM
     Dosage: UNK
     Route: 058
     Dates: start: 20170324, end: 20170719
  19. FLUCONAZOLE [Concomitant]
     Active Substance: FLUCONAZOLE
     Dosage: 50 MILLIGRAM, QD (START DATE: 30-MAY-2017)
     Route: 048
     Dates: end: 20170620
  20. Gelclair [Concomitant]
     Dosage: UNK (START DATE: 14-APR-2017)
     Route: 048
     Dates: end: 201707
  21. LOPERAMIDE [Concomitant]
     Active Substance: LOPERAMIDE
     Indication: Diarrhoea
     Dosage: UNK UNK, PRN (START DATE: 14-APR-2017)
     Route: 048
     Dates: end: 202102
  22. OMEPRAZOLE [Concomitant]
     Active Substance: OMEPRAZOLE
     Dosage: UNK
     Route: 065
  23. ONDANSETRON [Concomitant]
     Active Substance: ONDANSETRON
     Dosage: 8 MILLIGRAM, Q3W
     Route: 065
     Dates: start: 20170324, end: 20170721
  24. ACETAMINOPHEN [Concomitant]
     Active Substance: ACETAMINOPHEN
     Dosage: 1 GRAM (START DATE : 11-OCT-2017)
     Route: 048
  25. PFIZER-BIONTECH COVID-19 VACCINE [Concomitant]
     Active Substance: TOZINAMERAN
     Dosage: UNK (START DATE: 17-APR-2021)
     Route: 065
     Dates: end: 20210417
  26. PFIZER-BIONTECH COVID-19 VACCINE [Concomitant]
     Active Substance: TOZINAMERAN
     Dosage: UNK (START DATE: 06-FEB-2021)
     Route: 065
     Dates: end: 20210206
  27. PROCHLORPERAZINE [Concomitant]
     Active Substance: PROCHLORPERAZINE
     Dosage: 5 MILLIGRAM ( PRN START DATE: 29-JAN-2019)
     Route: 048
     Dates: end: 202102
  28. SERTRALINE [Concomitant]
     Active Substance: SERTRALINE HYDROCHLORIDE
     Dosage: 50 MILLIGRAM, QD
     Route: 048
  29. TRIMETHOPRIM [Concomitant]
     Active Substance: TRIMETHOPRIM
     Dosage: 200 MILLIGRAM (START DATE: 23-JUL-2020)
     Route: 048
     Dates: end: 20200726
  30. TRIMETHOPRIM [Concomitant]
     Active Substance: TRIMETHOPRIM
     Dosage: 200 MILLIGRAM, BID (START DATE: 26-JUL-2020)
     Route: 048
     Dates: end: 20200901
  31. PARAFFIN [Concomitant]
     Active Substance: PARAFFIN
     Dosage: UNK, PRN (06-SEP-2017)
     Route: 061
     Dates: end: 201712

REACTIONS (5)
  - Neuropathy peripheral [Recovered/Resolved]
  - Mucosal inflammation [Recovered/Resolved]
  - Diarrhoea [Recovered/Resolved with Sequelae]
  - Fatigue [Recovering/Resolving]
  - Intentional product use issue [Unknown]

NARRATIVE: CASE EVENT DATE: 20170324
